FAERS Safety Report 6025911-5 (Version None)
Quarter: 2009Q1

REPORT INFORMATION
  Report Type: 
  Country: None (occurrence: None)
  Receive Date: 20090102
  Receipt Date: 20081223
  Transmission Date: 20090719
  Serious: Yes (Hospitalization)
  Sender: FDA-Public Use
  Company Number: FR-ROCHE-598596

PATIENT
  Sex: Male

DRUGS (2)
  1. RIVOTRIL [Suspect]
     Indication: DRUG USE FOR UNKNOWN INDICATION
     Dosage: DOSAGE REGIMEN : 2 MG QD HALF IN THE MORNING AND IN THE EVENING
     Route: 048
     Dates: start: 20080801
  2. ABILIFY [Suspect]
     Indication: DRUG USE FOR UNKNOWN INDICATION
     Dosage: DOSAGE REGIMEN : 15 MG QD THIS DRUG WAS STOPPED IN BETWEEN 03 OCTOBER 2008 TO 21 OCTOBER 2008.
     Route: 048
     Dates: start: 20080801, end: 20081001

REACTIONS (2)
  - AGRANULOCYTOSIS [None]
  - SCROTAL ULCER [None]
